FAERS Safety Report 4911366-8 (Version None)
Quarter: 2006Q1

REPORT INFORMATION
  Report Type: 
  Country: None (occurrence: None)
  Receive Date: 20060213
  Receipt Date: 20060131
  Transmission Date: 20060701
  Serious: Yes (Hospitalization)
  Sender: FDA-Public Use
  Company Number: 200610471BWH

PATIENT
  Age: 74 Year
  Sex: Female
  Weight: 81.6 kg

DRUGS (10)
  1. SORAFENIB [Suspect]
     Indication: METASTATIC MALIGNANT MELANOMA
     Dosage: 400 MG, BID, ORAL
     Route: 048
     Dates: start: 20051215, end: 20060112
  2. DACARBAZINE [Suspect]
     Dosage: 1970 MG, TOTAL DAILY, INTRAVENOUS
     Route: 042
     Dates: start: 20051215, end: 20060112
  3. AVANDIA [Concomitant]
  4. LEVOXYL [Concomitant]
  5. DIOVAN [Concomitant]
  6. CRESTOR [Concomitant]
  7. LORTAB [Concomitant]
  8. PHENERGAN [Concomitant]
  9. AMARYL [Concomitant]
  10. PRILOSEC [Concomitant]

REACTIONS (4)
  - ATRIAL FLUTTER [None]
  - ATRIOVENTRICULAR BLOCK SECOND DEGREE [None]
  - INTRACARDIAC THROMBUS [None]
  - MYOCARDIAL INFARCTION [None]
